FAERS Safety Report 11003149 (Version 2)
Quarter: 2015Q4

REPORT INFORMATION
  Report Type: Not Available
  Country: US (occurrence: US)
  Receive Date: 20150409
  Receipt Date: 20151203
  Transmission Date: 20160304
  Serious: No
  Sender: FDA-Public Use
  Company Number: US-LUPIN PHARMACEUTICALS INC.-E2B_00003075

PATIENT
  Age: 42 Year
  Sex: Female
  Weight: 65.38 kg

DRUGS (3)
  1. BENAZEPRIL [Concomitant]
     Active Substance: BENAZEPRIL HYDROCHLORIDE
     Indication: HYPERTENSION
  2. MEFENAMIC ACID CAPSULES USP 250 MG [Suspect]
     Active Substance: MEFENAMIC ACID
     Indication: DYSMENORRHOEA
     Dates: start: 20150112, end: 20150112
  3. MEFENAMIC ACID CAPSULES USP 250 MG [Suspect]
     Active Substance: MEFENAMIC ACID
     Dates: start: 20150113, end: 20150112

REACTIONS (6)
  - Drug ineffective [Unknown]
  - Restlessness [Recovered/Resolved]
  - Abnormal dreams [Recovered/Resolved]
  - Nausea [Recovered/Resolved]
  - Dysmenorrhoea [Unknown]
  - Insomnia [Recovered/Resolved]

NARRATIVE: CASE EVENT DATE: 20150112
